FAERS Safety Report 9613023 (Version 1)
Quarter: 2013Q4

REPORT INFORMATION
  Report Type: Report from Study
  Country: FR (occurrence: FR)
  Receive Date: 20131010
  Receipt Date: 20131010
  Transmission Date: 20140711
  Serious: Yes (Death)
  Sender: FDA-Public Use
  Company Number: FR-B.I. PHARMACEUTICALS,INC./RIDGEFIELD-2013-BI-31751BI

PATIENT
  Age: 81 Year
  Sex: Male
  Weight: 110 kg

DRUGS (3)
  1. DABIGATRAN [Suspect]
     Indication: ATRIAL FIBRILLATION
  2. ROCEPHINE [Concomitant]
     Indication: ANTIBIOTIC THERAPY
     Dosage: 2 G
     Route: 042
     Dates: start: 20130726, end: 20130726
  3. FLAGYL [Concomitant]
     Indication: ANTIBIOTIC THERAPY
     Dosage: 500 MG
     Route: 042
     Dates: start: 20130726, end: 20130726

REACTIONS (2)
  - Metastases to bone [Fatal]
  - Metastases to lung [Fatal]
